FAERS Safety Report 10310661 (Version 1)
Quarter: 2014Q3

REPORT INFORMATION
  Report Type: Spontaneous
  Country: US (occurrence: None)
  Receive Date: 20140716
  Receipt Date: 20140716
  Transmission Date: 20150326
  Serious: Yes (Other)
  Sender: FDA-Public Use
  Company Number: None

PATIENT
  Age: 58 Year
  Sex: Female

DRUGS (1)
  1. LISINOPRIL. [Suspect]
     Active Substance: LISINOPRIL
     Indication: HYPERTENSION
     Route: 048
     Dates: start: 20100429, end: 20140301

REACTIONS (4)
  - Alopecia [None]
  - Visual impairment [None]
  - Postmenopausal haemorrhage [None]
  - Skin discolouration [None]

NARRATIVE: CASE EVENT DATE: 20100301
